FAERS Safety Report 5423822-7 (Version None)
Quarter: 2007Q3

REPORT INFORMATION
  Report Type: 
  Country: None (occurrence: None)
  Receive Date: 20070823
  Receipt Date: 20070816
  Transmission Date: 20080115
  Serious: Yes (Other)
  Sender: FDA-Public Use
  Company Number: US-ELI_LILLY_AND_COMPANY-US200708003515

PATIENT
  Age: 32 Year
  Sex: Male

DRUGS (4)
  1. HUMALOG [Suspect]
     Indication: DIABETES MELLITUS
     Route: 058
     Dates: start: 20030101
  2. HUMALOG [Suspect]
     Route: 058
     Dates: start: 20030101
  3. LABETALOL HCL [Concomitant]
  4. CLONIDINE [Concomitant]

REACTIONS (7)
  - BLOOD GLUCOSE INCREASED [None]
  - DRUG INEFFECTIVE [None]
  - DYSPHONIA [None]
  - HYPERGLYCAEMIA [None]
  - MUSCLE SPASMS [None]
  - PAIN IN EXTREMITY [None]
  - RENAL FAILURE [None]
